FAERS Safety Report 15935503 (Version 1)
Quarter: 2019Q1

REPORT INFORMATION
  Report Type: Spontaneous
  Country: US (occurrence: US)
  Receive Date: 20190208
  Receipt Date: 20190208
  Transmission Date: 20190417
  Serious: Yes (Other)
  Sender: FDA-Public Use
  Company Number: US-ASTRAZENECA-2019SE21519

PATIENT

DRUGS (18)
  1. AROMASIN [Suspect]
     Active Substance: EXEMESTANE
     Dosage: 25 MG 90 DAY SUPPLY
     Route: 065
  2. OMEPRAZOLE. [Concomitant]
     Active Substance: OMEPRAZOLE
  3. AZO [Concomitant]
     Active Substance: PHENAZOPYRIDINE HYDROCHLORIDE
  4. PRO BIOTIC [Concomitant]
  5. MELATONIN [Concomitant]
     Active Substance: MELATONIN
  6. ASPRIN [Concomitant]
     Active Substance: ASPIRIN
  7. AICLOFENAC SODIUM [Concomitant]
  8. STOOL SOFTENER (DOCUSATE) [Concomitant]
     Active Substance: DOCUSATE
  9. ATENOLOL. [Suspect]
     Active Substance: ATENOLOL
     Route: 065
  10. LEVOTHYROXINE. [Concomitant]
     Active Substance: LEVOTHYROXINE
  11. LISINOPRIL. [Suspect]
     Active Substance: LISINOPRIL
     Route: 048
  12. METFORMIN [Concomitant]
     Active Substance: METFORMIN HYDROCHLORIDE
  13. ANASTROZOLE. [Suspect]
     Active Substance: ANASTROZOLE
     Route: 048
  14. OMEPRAZOLE. [Suspect]
     Active Substance: OMEPRAZOLE
     Route: 048
  15. XARELTO [Concomitant]
     Active Substance: RIVAROXABAN
  16. CALCIUM [Concomitant]
     Active Substance: CALCIUM
  17. ATENOLOL. [Concomitant]
     Active Substance: ATENOLOL
  18. MULTIVITAMIN [Concomitant]
     Active Substance: VITAMINS

REACTIONS (1)
  - Anaphylactic shock [Unknown]
